FAERS Safety Report 9843990 (Version 1)
Quarter: 2013Q4

REPORT INFORMATION
  Report Type: Spontaneous
  Country: US (occurrence: None)
  Receive Date: 20131223
  Receipt Date: 20131223
  Transmission Date: 20140711
  Serious: No
  Sender: FDA-Public Use
  Company Number: 1000050645

PATIENT
  Age: 58 Year
  Sex: Female

DRUGS (4)
  1. LINZESS [Suspect]
     Indication: CONSTIPATION
     Dosage: 290 MCG (290 MCG, 1 IN 1 D)
     Dates: start: 2013
  2. NORCO (HYDROCODONE BITARTRATE, ACETOMINOPHEN) (HYDROCHODONE BITARTRATE, ACETOMINOPHEN)? [Concomitant]
  3. CELEBREX (CELECOXIB) (CELECOXIB) [Concomitant]
  4. MIRALAX (PLYETHYLENE GLYCOL 3350) (POLYETYLENE GLYCOL 3350) [Concomitant]

REACTIONS (4)
  - Weight decreased [None]
  - Decreased appetite [None]
  - Restless legs syndrome [None]
  - Nasopharyngitis [None]
